FAERS Safety Report 10195176 (Version 1)
Quarter: 2014Q2

REPORT INFORMATION
  Report Type: Spontaneous
  Country: DE (occurrence: DE)
  Receive Date: 20140526
  Receipt Date: 20140526
  Transmission Date: 20141212
  Serious: Yes (Other)
  Sender: FDA-Public Use
  Company Number: DE-DRREDDYS-GER/GER/14/0040515

PATIENT
  Age: 29 Year
  Sex: Female

DRUGS (2)
  1. QUETIAPINE [Suspect]
     Indication: SCHIZOPHRENIA, PARANOID TYPE
     Dosage: UNKNOWN SUICIDAL DOSAGE
     Route: 048
     Dates: start: 20130719, end: 20130719
  2. QUETIAPINE [Suspect]
     Dosage: 300 [MG/D ]/ EXACT EXPOSURE TIME UNKNOWN
     Route: 048

REACTIONS (8)
  - Suicidal ideation [Unknown]
  - Affect lability [Unknown]
  - Delusion [Unknown]
  - Somnolence [Unknown]
  - Convulsion [Recovered/Resolved]
  - Caesarean section [Unknown]
  - Premature delivery [Unknown]
  - Exposure during pregnancy [Unknown]
